FAERS Safety Report 24653810 (Version 1)
Quarter: 2024Q4

REPORT INFORMATION
  Report Type: Spontaneous
  Country: US (occurrence: US)
  Receive Date: 20241122
  Receipt Date: 20241122
  Transmission Date: 20250115
  Serious: Yes (Life-Threatening, Hospitalization, Other)
  Sender: SANDOZ
  Company Number: US-SANDOZ-SDZ2024US096497

PATIENT
  Age: 35 Year
  Sex: Male

DRUGS (2)
  1. BUPROPION [Suspect]
     Active Substance: BUPROPION
     Indication: Depression
     Dosage: 150 MG
     Route: 065
  2. BUPROPION [Suspect]
     Active Substance: BUPROPION
     Indication: Nicotine dependence

REACTIONS (3)
  - Pulmonary alveolar haemorrhage [Recovered/Resolved]
  - Incorrect route of product administration [Unknown]
  - Wrong technique in product usage process [Unknown]
